FAERS Safety Report 5714309-2 (Version None)
Quarter: 2008Q2

REPORT INFORMATION
  Report Type: 
  Country: None (occurrence: None)
  Receive Date: 20080421
  Receipt Date: 20080410
  Transmission Date: 20081010
  Serious: Yes (Other)
  Sender: FDA-Public Use
  Company Number: 2008SP006828

PATIENT
  Age: 42 Year
  Sex: Female

DRUGS (1)
  1. DESLORATADINE [Suspect]
     Indication: URTICARIA
     Dosage: 5 MG; ONCE; PO
     Route: 048
     Dates: start: 20080409, end: 20080409

REACTIONS (6)
  - AGEUSIA [None]
  - DYSPNOEA [None]
  - PHARYNGEAL OEDEMA [None]
  - TACHYCARDIA [None]
  - TONGUE OEDEMA [None]
  - UNEVALUABLE EVENT [None]
